FAERS Safety Report 6371223-X (Version None)
Quarter: 2009Q3

REPORT INFORMATION
  Report Type: 
  Country: None (occurrence: None)
  Receive Date: 20090923
  Receipt Date: 20070607
  Transmission Date: 20100115
  Serious: Yes (Other)
  Sender: FDA-Public Use
  Company Number: US-ASTRAZENECA-2006UW27645

PATIENT
  Age: 44 Year
  Sex: Male
  Weight: 104.3 kg

DRUGS (37)
  1. SEROQUEL [Suspect]
     Indication: SCHIZOPHRENIA
     Dosage: 25 MG TO 600 MG
     Route: 048
     Dates: start: 20000627
  2. SEROQUEL [Suspect]
     Indication: BIPOLAR DISORDER
     Dosage: 25 MG TO 600 MG
     Route: 048
     Dates: start: 20000627
  3. SEROQUEL [Suspect]
     Route: 048
  4. SEROQUEL [Suspect]
     Route: 048
  5. ABILIFY [Concomitant]
     Dates: start: 20050101
  6. CLOZARIL [Concomitant]
     Dates: start: 20050101
  7. GEODON [Concomitant]
     Dates: start: 20060101
  8. HALDOL [Concomitant]
     Dates: start: 19990101
  9. NAVANE [Concomitant]
     Dates: start: 20060101
  10. RISPERDAL [Concomitant]
     Dates: start: 20010101
  11. SOLIAN [Concomitant]
     Dates: start: 20020101
  12. STELAZINE [Concomitant]
     Dates: start: 20030101
  13. THORAZINE [Concomitant]
     Dates: start: 20000101
  14. TRILAFON [Concomitant]
     Dates: start: 20010101
  15. ZYPREXA [Concomitant]
     Dates: start: 20060101
  16. PAXIL [Concomitant]
     Route: 048
  17. CELEBREX [Concomitant]
     Route: 048
  18. PREVACID [Concomitant]
     Route: 065
  19. ZOLOFT [Concomitant]
     Route: 048
  20. VIOXX [Concomitant]
     Route: 048
     Dates: end: 20020604
  21. MACRODANTIN [Concomitant]
     Route: 065
  22. MOTRIN [Concomitant]
     Dosage: 400 TO 800 MG BID TO Q6H
     Route: 048
     Dates: end: 20020604
  23. ROBITUSSIN COUGH SYRUP [Concomitant]
     Route: 048
  24. TYLENOL (CAPLET) [Concomitant]
     Dosage: 10 TO 500 MG Q4 HR
     Route: 048
  25. KAOPECTATE [Concomitant]
     Dosage: 1 OZ PRN
     Route: 048
  26. VALIUM [Concomitant]
     Indication: ALCOHOL WITHDRAWAL SYNDROME
     Dosage: 5 TO 10 MG 3 TO 8 DOSES
     Route: 048
     Dates: end: 20010304
  27. ATIVAN [Concomitant]
     Dosage: 0.5 TO 2.0 MG Q8 HRS
     Route: 048
  28. ATIVAN [Concomitant]
     Route: 030
  29. HUMALOG [Concomitant]
     Dosage: 200 TO 400 2 TO 8 UNITS
     Route: 065
     Dates: start: 20061015
  30. METFORMIN HCL [Concomitant]
     Route: 065
  31. LEVAQUIN [Concomitant]
     Route: 048
  32. PROTONIX [Concomitant]
     Route: 065
     Dates: end: 20061011
  33. TRAZODONE [Concomitant]
     Indication: HEADACHE
     Route: 065
  34. TRAZODONE [Concomitant]
     Indication: RHEUMATOID ARTHRITIS
     Route: 065
  35. TRAZODONE [Concomitant]
     Indication: SCOLIOSIS
     Route: 065
  36. TRAZODONE [Concomitant]
     Indication: SLEEP DISORDER
     Route: 065
  37. ZOLPIDEM TARTRATE [Concomitant]
     Route: 065

REACTIONS (2)
  - DIABETIC KETOACIDOSIS [None]
  - TYPE 1 DIABETES MELLITUS [None]
